FAERS Safety Report 5441130-5 (Version None)
Quarter: 2007Q3

REPORT INFORMATION
  Report Type: 
  Country: None (occurrence: None)
  Receive Date: 20070831
  Receipt Date: 20070823
  Transmission Date: 20080115
  Serious: Yes (Hospitalization)
  Sender: FDA-Public Use
  Company Number: JP-PFIZER INC-2007066403

PATIENT
  Sex: Female
  Weight: 50 kg

DRUGS (12)
  1. FARMORUBICIN RD [Suspect]
     Indication: BREAST CANCER
     Route: 042
     Dates: start: 20070713, end: 20070803
  2. ENDOXAN [Suspect]
     Indication: BREAST CANCER
     Route: 042
     Dates: start: 20070713, end: 20070803
  3. 5-FU [Suspect]
     Indication: BREAST CANCER
     Route: 042
     Dates: start: 20070713, end: 20070803
  4. NOVAMIN [Suspect]
     Route: 048
     Dates: start: 20070804, end: 20070806
  5. PRIMPERAN INJ [Suspect]
     Route: 048
     Dates: start: 20070804, end: 20070806
  6. NASEA [Concomitant]
     Route: 048
     Dates: start: 20070804, end: 20070806
  7. DECADRON [Concomitant]
     Route: 048
     Dates: start: 20070804, end: 20070806
  8. DECADRON [Concomitant]
     Route: 042
     Dates: start: 20070803, end: 20070803
  9. DEPAS [Concomitant]
     Route: 048
     Dates: start: 20070804, end: 20070806
  10. FAMOTIDINE [Concomitant]
     Route: 042
     Dates: start: 20070803, end: 20070803
  11. FAMOTIDINE [Concomitant]
     Route: 048
     Dates: start: 20070804, end: 20070806
  12. KYTRIL [Concomitant]
     Route: 042
     Dates: start: 20070803, end: 20070803

REACTIONS (1)
  - TREMOR [None]
